FAERS Safety Report 5106439-3 (Version None)
Quarter: 2006Q3

REPORT INFORMATION
  Report Type: 
  Country: None (occurrence: None)
  Receive Date: 20060731
  Receipt Date: 20051228
  Transmission Date: 20061208
  Serious: Yes (Death)
  Sender: FDA-Public Use
  Company Number: US-JNJFOC-20051104712

PATIENT
  Age: 58 Year
  Sex: Male

DRUGS (5)
  1. RISPERDAL [Suspect]
     Indication: PANIC DISORDER
     Dosage: ORAL; SEE IMAGE
     Route: 048
     Dates: start: 20050101, end: 20050601
  2. RISPERDAL [Suspect]
     Indication: PANIC DISORDER
     Dosage: ORAL; SEE IMAGE
     Route: 048
     Dates: start: 20050714, end: 20050901
  3. LEXAPRO (SSRI) [Concomitant]
  4. KLONOPIN [Concomitant]
  5. SEROQUEL [Concomitant]

REACTIONS (1)
  - SUDDEN CARDIAC DEATH [None]
